FAERS Safety Report 8182371 (Version 2)
Quarter: 2013Q3

REPORT INFORMATION
  Report Type: Report from Study
  Country: AU (occurrence: AU)
  Receive Date: 20111014
  Receipt Date: 20130812
  Transmission Date: 20140515
  Serious: Yes (Other)
  Sender: FDA-Public Use
  Company Number: AU-ROCHE-1001014

PATIENT
  Sex: Male

DRUGS (2)
  1. LUCENTIS [Suspect]
     Indication: AGE-RELATED MACULAR DEGENERATION
     Route: 050
     Dates: end: 201010
  2. LUCENTIS [Suspect]
     Route: 050
     Dates: start: 201012

REACTIONS (2)
  - Macular fibrosis [Not Recovered/Not Resolved]
  - Cerebrovascular accident [Recovered/Resolved]
